FAERS Safety Report 17401819 (Version 1)
Quarter: 2020Q1

REPORT INFORMATION
  Report Type: Spontaneous
  Country: US (occurrence: US)
  Receive Date: 20200210
  Receipt Date: 20200210
  Transmission Date: 20200409
  Serious: Yes (Hospitalization)
  Sender: FDA-Public Use
  Company Number: None

PATIENT
  Age: 37 Year
  Sex: Female

DRUGS (7)
  1. HUMALOG [Concomitant]
     Active Substance: INSULIN LISPRO
  2. PULMOZYME [Suspect]
     Active Substance: DORNASE ALFA
     Route: 055
  3. PULMOZYME [Concomitant]
     Active Substance: DORNASE ALFA
  4. RETACRIT [Concomitant]
     Active Substance: EPOETIN ALFA-EPBX
  5. RETACRIT [Suspect]
     Active Substance: EPOETIN ALFA-EPBX
     Dosage: ?          OTHER FREQUENCY:ONCE A MONTH;?
     Route: 058
  6. LOSARTAN. [Concomitant]
     Active Substance: LOSARTAN
  7. CREON [Concomitant]
     Active Substance: PANCRELIPASE AMYLASE\PANCRELIPASE LIPASE\PANCRELIPASE PROTEASE

REACTIONS (2)
  - Dyspnoea [None]
  - Therapy cessation [None]
